FAERS Safety Report 6659951-X (Version None)
Quarter: 2010Q1

REPORT INFORMATION
  Report Type: 
  Country: None (occurrence: None)
  Receive Date: 20100330
  Receipt Date: 20100326
  Transmission Date: 20100710
  Serious: Yes (Hospitalization)
  Sender: FDA-Public Use
  Company Number: US-GILEAD-2010-0028097

PATIENT
  Sex: Female
  Weight: 57.658 kg

DRUGS (12)
  1. LETAIRIS [Suspect]
     Indication: PULMONARY ARTERIAL HYPERTENSION
     Route: 048
     Dates: start: 20081210
  2. REVATIO [Concomitant]
  3. OXYGEN [Concomitant]
  4. ONDANSETRON [Concomitant]
  5. ADVAIR DISKUS 100/50 [Concomitant]
  6. SPIRIVA [Concomitant]
  7. LEVOTHYROXINE SODIUM [Concomitant]
  8. MELOXICAM [Concomitant]
  9. TRAMADOL HCL [Concomitant]
  10. PANTOPRAZOLE [Concomitant]
  11. FOLIC ACID [Concomitant]
  12. CALCIUM [Concomitant]

REACTIONS (4)
  - COUGH [None]
  - DYSPNOEA [None]
  - NON-SMALL CELL LUNG CANCER METASTATIC [None]
  - PYREXIA [None]
